APPROVED DRUG PRODUCT: XOFLUZA
Active Ingredient: BALOXAVIR MARBOXIL
Strength: 30MG/PACKET
Dosage Form/Route: FOR SUSPENSION;ORAL
Application: N214410 | Product #002
Applicant: GENENTECH INC
Approved: May 30, 2025 | RLD: Yes | RS: No | Type: RX

PATENTS:
Patent 10633397 | Expires: Apr 27, 2036
Patent 10633397 | Expires: Apr 27, 2036
Patent 11306106 | Expires: Aug 9, 2037
Patent 11306106 | Expires: Aug 9, 2037
Patent 8927710 | Expires: May 5, 2031
Patent 8987441 | Expires: Oct 24, 2032
Patent 11261198 | Expires: Sep 25, 2038
Patent 9815835 | Expires: Jun 14, 2030
Patent 10759814 | Expires: Aug 9, 2037
Patent 10392406 | Expires: Apr 27, 2036
Patent 11925648 | Expires: Apr 21, 2041